FAERS Safety Report 19826405 (Version 3)
Quarter: 2021Q4

REPORT INFORMATION
  Report Type: Spontaneous
  Country: JP (occurrence: JP)
  Receive Date: 20210914
  Receipt Date: 20211013
  Transmission Date: 20220303
  Serious: Yes (Death, Hospitalization)
  Sender: FDA-Public Use
  Company Number: JP-CHUGAI-2021016070

PATIENT
  Age: 53 Year
  Sex: Female
  Weight: 56.3 kg

DRUGS (29)
  1. AVASTIN [Suspect]
     Active Substance: BEVACIZUMAB
     Indication: Cervix carcinoma
     Route: 042
     Dates: start: 20210420, end: 20210511
  2. AVASTIN [Suspect]
     Active Substance: BEVACIZUMAB
     Route: 042
     Dates: start: 20210602, end: 20210623
  3. AVASTIN [Suspect]
     Active Substance: BEVACIZUMAB
     Route: 042
     Dates: start: 20210714, end: 20210714
  4. HERBAL NOS [Suspect]
     Active Substance: HERBALS
     Indication: Gastrointestinal motility disorder
     Dosage: 3 DOSAGE FORM
     Route: 048
     Dates: start: 20210807, end: 20210812
  5. CARBOPLATIN [Concomitant]
     Active Substance: CARBOPLATIN
     Indication: Cervix carcinoma
     Dosage: 609 MILLIGRAM, QD
     Route: 041
     Dates: start: 20210420, end: 20210420
  6. CARBOPLATIN [Concomitant]
     Active Substance: CARBOPLATIN
     Dosage: 608 MILLIGRAM, QD
     Route: 041
     Dates: start: 20210511, end: 20210511
  7. CARBOPLATIN [Concomitant]
     Active Substance: CARBOPLATIN
     Dosage: 605 MILLIGRAM, ONCE/3WEEKS
     Route: 041
     Dates: start: 20210602, end: 20210623
  8. CARBOPLATIN [Concomitant]
     Active Substance: CARBOPLATIN
     Dosage: 599 MILLIGRAM, QD
     Route: 041
     Dates: start: 20210714, end: 20210714
  9. PACLITAXEL [Concomitant]
     Active Substance: PACLITAXEL
     Indication: Cervix carcinoma
     Route: 041
     Dates: start: 20210420, end: 20210420
  10. PACLITAXEL [Concomitant]
     Active Substance: PACLITAXEL
     Route: 041
     Dates: start: 20210623, end: 20210623
  11. PACLITAXEL [Concomitant]
     Active Substance: PACLITAXEL
     Route: 041
     Dates: start: 20210714, end: 20210714
  12. PACLITAXEL [Concomitant]
     Active Substance: PACLITAXEL
     Route: 041
     Dates: start: 20210511, end: 20210511
  13. PACLITAXEL [Concomitant]
     Active Substance: PACLITAXEL
     Route: 041
     Dates: start: 20210602, end: 20210602
  14. GLIMEPIRIDE [Concomitant]
     Active Substance: GLIMEPIRIDE
     Route: 048
  15. METFORMIN HYDROCHLORIDE [Concomitant]
     Active Substance: METFORMIN HYDROCHLORIDE
     Route: 048
  16. AZILSARTAN KAMEDOXOMIL [Concomitant]
     Active Substance: AZILSARTAN KAMEDOXOMIL
     Route: 048
  17. DAPAGLIFLOZIN [Concomitant]
     Active Substance: DAPAGLIFLOZIN
     Route: 048
  18. PITAVASTATIN CALCIUM [Concomitant]
     Active Substance: PITAVASTATIN CALCIUM
     Route: 048
  19. SODIUM FERROUS CITRATE [Concomitant]
     Active Substance: SODIUM FERROUS CITRATE
     Route: 048
  20. AMLODIPINE BESYLATE [Concomitant]
     Active Substance: AMLODIPINE BESYLATE
     Route: 048
  21. LIMAPROST [Concomitant]
     Active Substance: LIMAPROST
     Route: 048
  22. PREGABALIN [Concomitant]
     Active Substance: PREGABALIN
     Route: 048
  23. LOXOPROFEN SODIUM [Concomitant]
     Active Substance: LOXOPROFEN SODIUM
     Route: 048
  24. REBAMIPIDE [Concomitant]
     Active Substance: REBAMIPIDE
     Route: 048
  25. PIRENOXINE [Concomitant]
     Active Substance: PIRENOXINE
     Route: 047
  26. MIYA-BM [Concomitant]
     Active Substance: CLOSTRIDIUM BUTYRICUM SPORES STRAIN M-55
     Route: 048
  27. LOPENA [Concomitant]
     Route: 048
  28. METOCLOPRAMIDE [Concomitant]
     Active Substance: METOCLOPRAMIDE
     Route: 048
  29. JANUVIA [Concomitant]
     Active Substance: SITAGLIPTIN PHOSPHATE
     Route: 048

REACTIONS (7)
  - Hypokalaemia [Recovering/Resolving]
  - Gastrointestinal stoma necrosis [Recovering/Resolving]
  - Large intestine perforation [Recovering/Resolving]
  - Sepsis [Not Recovered/Not Resolved]
  - Febrile neutropenia [Recovered/Resolved]
  - Pseudoaldosteronism [Unknown]
  - Aspiration [Fatal]

NARRATIVE: CASE EVENT DATE: 20210728
